FAERS Safety Report 15475273 (Version 1)
Quarter: 2018Q4

REPORT INFORMATION
  Report Type: Spontaneous
  Country: US (occurrence: US)
  Receive Date: 20181008
  Receipt Date: 20181008
  Transmission Date: 20190205
  Serious: No
  Sender: FDA-Public Use
  Company Number: US-CHILTERN-US-2018-000085

PATIENT
  Sex: Female

DRUGS (5)
  1. RHOPRESSA [Suspect]
     Active Substance: NETARSUDIL MESYLATE
     Indication: NORMAL TENSION GLAUCOMA
     Dosage: 1 GTT, QD
     Route: 047
  2. SYSTANE (HYPROMELLOSE 2910 (4000 MPA.S)) [Concomitant]
     Active Substance: HYPROMELLOSE 2910 (4000 MPA.S)
     Indication: DRY EYE
     Route: 047
  3. CALCIUM [Concomitant]
     Active Substance: CALCIUM
     Indication: PROPHYLAXIS
     Dosage: 1 CAPSULE, QD
     Route: 048
  4. VITAMIN D                          /00107901/ [Concomitant]
     Active Substance: ERGOCALCIFEROL
     Indication: VITAMIN D DECREASED
     Dosage: 1 CAPSULE, QD
     Route: 048
  5. ZIOPTAN [Concomitant]
     Active Substance: TAFLUPROST
     Indication: NORMAL TENSION GLAUCOMA
     Dosage: 1 GTT, QD
     Route: 047

REACTIONS (1)
  - Rash [Not Recovered/Not Resolved]
